FAERS Safety Report 10175873 (Version 1)
Quarter: 2014Q2

REPORT INFORMATION
  Report Type: Spontaneous
  Country: GB (occurrence: GB)
  Receive Date: 20140516
  Receipt Date: 20140516
  Transmission Date: 20141212
  Serious: Yes (Hospitalization)
  Sender: FDA-Public Use
  Company Number: US-ASTRAZENECA-2014SE33544

PATIENT
  Age: 46 Year
  Sex: Male
  Weight: 113 kg

DRUGS (2)
  1. CANDESARTAN [Suspect]
     Indication: HYPERTENSION
     Route: 048
     Dates: start: 20140415, end: 20140420
  2. RAMIPRIL [Concomitant]

REACTIONS (4)
  - Anxiety [Recovering/Resolving]
  - Angina pectoris [Recovering/Resolving]
  - Arthralgia [Recovering/Resolving]
  - Palpitations [Recovering/Resolving]
